FAERS Safety Report 25691587 (Version 1)
Quarter: 2025Q3

REPORT INFORMATION
  Report Type: Spontaneous
  Country: US (occurrence: US)
  Receive Date: 20250818
  Receipt Date: 20250818
  Transmission Date: 20251021
  Serious: No
  Sender: BAYER HEALTHCARE PHARMACEUTICALS INC.
  Company Number: US-BAYER-2025A107115

PATIENT
  Age: 68 Year
  Sex: Female

DRUGS (2)
  1. REGORAFENIB [Suspect]
     Active Substance: REGORAFENIB
     Indication: Colorectal cancer metastatic
     Dosage: 80 MG, QD FOR DAYS 1-7 OF A 28-DAY CYCLE, THEN AN ESCALATED DOSE OF 120 MG DAILY FOR 2 WEEKS AND 1 W
     Route: 048
     Dates: start: 2021
  2. FLUOROURACIL [Concomitant]
     Active Substance: FLUOROURACIL
     Indication: Colorectal cancer metastatic
     Route: 042
     Dates: start: 2021

REACTIONS (1)
  - Palmar-plantar erythrodysaesthesia syndrome [None]
